FAERS Safety Report 7506781-2 (Version None)
Quarter: 2011Q2

REPORT INFORMATION
  Report Type: 
  Country: None (occurrence: None)
  Receive Date: 20110526
  Receipt Date: 20110513
  Transmission Date: 20111010
  Serious: Yes (Hospitalization)
  Sender: FDA-Public Use
  Company Number: A0811847A

PATIENT
  Age: 32 Year
  Sex: Female
  Weight: 161.4 kg

DRUGS (8)
  1. AVANDIA [Suspect]
     Dosage: 8MG PER DAY
     Route: 065
     Dates: start: 20030401, end: 20070701
  2. LISINOPRIL [Concomitant]
  3. LORTAB [Concomitant]
  4. ALAVERT [Concomitant]
  5. PROAIR HFA [Concomitant]
  6. ALBUTEROL SULFATE AUTOHALER [Concomitant]
  7. GLUCOPHAGE [Concomitant]
  8. GLUCOVANCE [Concomitant]

REACTIONS (4)
  - VENTRICULAR TACHYCARDIA [None]
  - ATRIOVENTRICULAR BLOCK COMPLETE [None]
  - CONGESTIVE CARDIOMYOPATHY [None]
  - CARDIAC FAILURE CONGESTIVE [None]
